FAERS Safety Report 18062857 (Version 2)
Quarter: 2020Q3

REPORT INFORMATION
  Report Type: Report from Study
  Country: None (occurrence: CO)
  Receive Date: 20200724
  Receipt Date: 20200827
  Transmission Date: 20201103
  Serious: Yes (Hospitalization, Disabling, Other)
  Sender: FDA-Public Use
  Company Number: CO-ABBVIE-20K-036-3496686-00

PATIENT
  Sex: Female
  Weight: 56 kg

DRUGS (1)
  1. HUMIRA [Suspect]
     Active Substance: ADALIMUMAB
     Indication: CROHN^S DISEASE
     Route: 058
     Dates: start: 20180818, end: 20200603

REACTIONS (5)
  - Lung perforation [Recovered/Resolved]
  - Gastrointestinal disorder [Not Recovered/Not Resolved]
  - Cardiac arrest [Recovered/Resolved]
  - Blindness [Not Recovered/Not Resolved]
  - Wound secretion [Recovering/Resolving]

NARRATIVE: CASE EVENT DATE: 202007
